FAERS Safety Report 11079423 (Version 8)
Quarter: 2015Q3

REPORT INFORMATION
  Report Type: Spontaneous
  Country: US (occurrence: US)
  Receive Date: 20150430
  Receipt Date: 20150716
  Transmission Date: 20151125
  Serious: Yes (Hospitalization, Other)
  Sender: FDA-Public Use
  Company Number: US-GLAXOSMITHKLINE-US2015GSK055577

PATIENT
  Age: 58 Year
  Sex: Male

DRUGS (13)
  1. TRAMADOL. [Concomitant]
     Active Substance: TRAMADOL
  2. SYNTHROID [Concomitant]
     Active Substance: LEVOTHYROXINE SODIUM
  3. METOPROLOL [Concomitant]
     Active Substance: METOPROLOL
  4. FLAGYL [Concomitant]
     Active Substance: METRONIDAZOLE\METRONIDAZOLE HYDROCHLORIDE
  5. GLIMEPIRIDE. [Concomitant]
     Active Substance: GLIMEPIRIDE
  6. VOTRIENT [Suspect]
     Active Substance: PAZOPANIB HYDROCHLORIDE
     Indication: RENAL CELL CARCINOMA
     Dosage: 800 MG, QD
     Dates: start: 20140711
  7. TERAZOSIN [Concomitant]
     Active Substance: TERAZOSIN\TERAZOSIN HYDROCHLORIDE
  8. ROCEPHIN [Concomitant]
     Active Substance: CEFTRIAXONE SODIUM
  9. ALLOPURINOL. [Concomitant]
     Active Substance: ALLOPURINOL
  10. FUROSEMIDE. [Concomitant]
     Active Substance: FUROSEMIDE
  11. CRESTOR [Concomitant]
     Active Substance: ROSUVASTATIN CALCIUM
  12. ONGLYZA [Concomitant]
     Active Substance: SAXAGLIPTIN HYDROCHLORIDE
  13. PANTOPRAZOLE [Concomitant]
     Active Substance: PANTOPRAZOLE SODIUM

REACTIONS (9)
  - Large intestine perforation [Recovering/Resolving]
  - Colonic abscess [Recovering/Resolving]
  - Abdominal abscess [Recovered/Resolved]
  - Dysphonia [Not Recovered/Not Resolved]
  - Impaired healing [Not Recovered/Not Resolved]
  - Upper respiratory tract infection [Unknown]
  - Blood urine present [Unknown]
  - Abdominal infection [Recovering/Resolving]
  - Skin ulcer [Not Recovered/Not Resolved]

NARRATIVE: CASE EVENT DATE: 201501
